FAERS Safety Report 7961438-9 (Version None)
Quarter: 2011Q4

REPORT INFORMATION
  Report Type: 
  Country: None (occurrence: None)
  Receive Date: 20111202
  Receipt Date: 20111121
  Transmission Date: 20120403
  Serious: Yes (Death, Hospitalization)
  Sender: FDA-Public Use
  Company Number: 11-706

PATIENT
  Age: 25 Year
  Sex: Female

DRUGS (5)
  1. ACETAMINOPHEN [Suspect]
     Indication: NASOPHARYNGITIS
     Dosage: ORAL
     Route: 048
     Dates: start: 20101201
  2. IBUPROFEN [Suspect]
     Indication: NASOPHARYNGITIS
     Dosage: ORAL
     Route: 048
  3. ACETAMINOPHEN AND CODEINE PHOSPHATE [Concomitant]
  4. LEMPSIP [Suspect]
     Indication: NASOPHARYNGITIS
     Dosage: ORAL
     Route: 048
     Dates: start: 20101201
  5. ANTIOBIOTICS [Concomitant]

REACTIONS (15)
  - ACCIDENTAL OVERDOSE [None]
  - RESTLESSNESS [None]
  - PHARYNGITIS STREPTOCOCCAL [None]
  - APHTHOUS STOMATITIS [None]
  - ABNORMAL BEHAVIOUR [None]
  - GAIT DISTURBANCE [None]
  - HEPATIC FAILURE [None]
  - DRUG ADMINISTRATION ERROR [None]
  - BALANCE DISORDER [None]
  - MEMORY IMPAIRMENT [None]
  - HALLUCINATION [None]
  - HEPATIC NECROSIS [None]
  - DYSPHAGIA [None]
  - LOWER RESPIRATORY TRACT INFECTION [None]
  - MOUTH CYST [None]
